FAERS Safety Report 5423873-2 (Version None)
Quarter: 2007Q3

REPORT INFORMATION
  Report Type: 
  Country: None (occurrence: None)
  Receive Date: 20070823
  Receipt Date: 20070810
  Transmission Date: 20080115
  Serious: Yes (Death)
  Sender: FDA-Public Use
  Company Number: CN-ROCHE-509169

PATIENT
  Age: 52 Year
  Sex: Male

DRUGS (4)
  1. ROCEPHIN [Suspect]
     Indication: DRUG USE FOR UNKNOWN INDICATION
     Dosage: ROUTE REPORTED AS I.V.GTT.
     Route: 042
     Dates: start: 20070101, end: 20070101
  2. RINGER'S INJECTION [Suspect]
     Indication: DEHYDRATION
     Route: 065
     Dates: start: 20070729, end: 20070729
  3. UNSPECIFIED DRUG [Concomitant]
  4. UNSPECIFIED DRUG [Concomitant]

REACTIONS (1)
  - DEATH [None]
